FAERS Safety Report 12980072 (Version 1)
Quarter: 2016Q4

REPORT INFORMATION
  Report Type: Spontaneous
  Country: HU (occurrence: HU)
  Receive Date: 20161128
  Receipt Date: 20161128
  Transmission Date: 20170207
  Serious: Yes (Hospitalization)
  Sender: FDA-Public Use
  Company Number: HU-SA-2016SA212270

PATIENT
  Age: 70 Year
  Sex: Male

DRUGS (1)
  1. ENOXAPARIN SODIUM. [Suspect]
     Active Substance: ENOXAPARIN SODIUM
     Indication: ATRIAL FIBRILLATION
     Route: 058

REACTIONS (3)
  - Somnolence [Recovered/Resolved]
  - Dysarthria [Recovered/Resolved]
  - Hemiparesis [Recovering/Resolving]
